FAERS Safety Report 5093593-5 (Version None)
Quarter: 2006Q3

REPORT INFORMATION
  Report Type: 
  Country: None (occurrence: None)
  Receive Date: 20060829
  Receipt Date: 20060814
  Transmission Date: 20061208
  Serious: Yes (Hospitalization)
  Sender: FDA-Public Use
  Company Number: 2006BH012937

PATIENT
  Age: 32 Year
  Sex: Female

DRUGS (5)
  1. DEXAMETHASONE TAB [Suspect]
     Indication: PREMEDICATION
  2. CYCLOPHOSPHAMIDE [Suspect]
     Indication: BREAST CANCER
     Dosage: EVERY 3 WK
  3. DOXORUBICIN HCL [Suspect]
     Indication: BREAST CANCER
     Dosage: EVERY 3 WK
  4. DOCETAXEL [Suspect]
     Indication: BREAST CANCER
     Dosage: EVERY 3 WK
  5. NEULASTA [Suspect]
     Indication: BREAST CANCER
     Dosage: 6 MG;SC
     Route: 058

REACTIONS (3)
  - NEUTROPENIA [None]
  - NEUTROPHIL COUNT INCREASED [None]
  - PYREXIA [None]
